FAERS Safety Report 22084481 (Version 1)
Quarter: 2023Q1

REPORT INFORMATION
  Report Type: Spontaneous
  Country: CN (occurrence: CN)
  Receive Date: 20230310
  Receipt Date: 20230310
  Transmission Date: 20230418
  Serious: Yes (Hospitalization, Other)
  Sender: FDA-Public Use
  Company Number: CN-009507513-2303CHN003233

PATIENT
  Age: 88 Year
  Sex: Male
  Weight: 63 kg

DRUGS (4)
  1. JANUVIA [Suspect]
     Active Substance: SITAGLIPTIN PHOSPHATE
     Indication: Type 2 diabetes mellitus
     Dosage: 1 TABLET, QD
     Route: 048
     Dates: start: 20210501, end: 20210718
  2. PIOGLITAZONE [Concomitant]
     Active Substance: PIOGLITAZONE
     Indication: Type 2 diabetes mellitus
     Dosage: 1 TABLET, BID
     Route: 048
     Dates: start: 20210501, end: 20210719
  3. INSULIN ASPART [Concomitant]
     Active Substance: INSULIN ASPART
     Indication: Type 2 diabetes mellitus
     Dosage: 14 IU, 14U IN THE MORNING AND 14U IN THE EVENING 10 MINUTES BEFORE MEALS (ALSO REPORTED AS TID)||BID
     Route: 058
     Dates: start: 20210501, end: 20210719
  4. METFORMIN [Concomitant]
     Active Substance: METFORMIN HYDROCHLORIDE
     Indication: Type 2 diabetes mellitus
     Dosage: 1 TABLET, BID
     Route: 048

REACTIONS (7)
  - Pancreatitis acute [Unknown]
  - Type 2 diabetes mellitus [Unknown]
  - Gallbladder enlargement [Unknown]
  - Biliary dilatation [Unknown]
  - Hepatic cyst [Unknown]
  - Benign prostatic hyperplasia [Unknown]
  - Prostatic calcification [Unknown]

NARRATIVE: CASE EVENT DATE: 20210719
